FAERS Safety Report 6272256-4 (Version None)
Quarter: 2009Q3

REPORT INFORMATION
  Report Type: 
  Country: None (occurrence: None)
  Receive Date: 20090717
  Receipt Date: 20090708
  Transmission Date: 20100115
  Serious: Yes (Disabling)
  Sender: FDA-Public Use
  Company Number: JP-PFIZER INC-2009241447

PATIENT
  Age: 70 Year

DRUGS (5)
  1. ATORVASTATIN CALCIUM [Suspect]
     Indication: HYPERLIPIDAEMIA
     Dosage: 5 MG, UNKNOWN/D
     Route: 048
     Dates: start: 20040601
  2. MICARDIS [Concomitant]
     Dosage: UNK
     Dates: start: 20070228
  3. PANALDINE [Concomitant]
     Dosage: UNK
     Route: 048
     Dates: start: 20040406
  4. ASPIRIN [Concomitant]
     Dosage: UNK
     Route: 048
     Dates: start: 20050406
  5. NORVASC [Concomitant]
     Dosage: UNK
     Route: 048
     Dates: start: 20041203

REACTIONS (1)
  - CEREBRAL INFARCTION [None]
